FAERS Safety Report 16737017 (Version 3)
Quarter: 2020Q3

REPORT INFORMATION
  Report Type: Spontaneous
  Country: US (occurrence: US)
  Receive Date: 20190823
  Receipt Date: 20200702
  Transmission Date: 20201102
  Serious: No
  Sender: FDA-Public Use
  Company Number: US-ACTELION-A-US2019-194312

PATIENT
  Age: 1 Year
  Sex: Male

DRUGS (9)
  1. TRACLEER [Suspect]
     Active Substance: BOSENTAN
     Indication: PULMONARY ARTERIAL HYPERTENSION
     Dosage: UNK
     Route: 048
     Dates: end: 20200418
  2. TRACLEER [Suspect]
     Active Substance: BOSENTAN
     Dosage: 8 MG, BID
     Route: 048
     Dates: start: 201902
  3. TRACLEER [Suspect]
     Active Substance: BOSENTAN
     Dosage: 1 MG, BID
     Route: 048
     Dates: start: 20191202
  4. SILDENAFIL CITRATE. [Concomitant]
     Active Substance: SILDENAFIL CITRATE
     Dosage: 8 MG, TID
  5. TRACLEER [Suspect]
     Active Substance: BOSENTAN
     Dosage: 16 MG, BID
     Route: 048
  6. TRACLEER [Suspect]
     Active Substance: BOSENTAN
     Dosage: 2 MG
     Route: 048
     Dates: start: 20191202
  7. ALBUTEROL HFA [Concomitant]
     Active Substance: ALBUTEROL SULFATE
     Dosage: UNK, PRN
  8. TRACLEER [Suspect]
     Active Substance: BOSENTAN
     Dosage: 1 MG, OD
     Route: 048
     Dates: start: 20191202
  9. ENALAPRIL [Concomitant]
     Active Substance: ENALAPRIL
     Dosage: 0.4 MG, BID
     Route: 048
     Dates: start: 201902

REACTIONS (4)
  - Alanine aminotransferase increased [Recovering/Resolving]
  - Aspartate aminotransferase increased [Recovering/Resolving]
  - Laboratory test interference [Recovered/Resolved]
  - Hepatic enzyme increased [Recovering/Resolving]

NARRATIVE: CASE EVENT DATE: 20191231
